FAERS Safety Report 21921158 (Version 2)
Quarter: 2023Q1

REPORT INFORMATION
  Report Type: Spontaneous
  Country: ZA (occurrence: ZA)
  Receive Date: 20230127
  Receipt Date: 20230223
  Transmission Date: 20230418
  Serious: Yes (Death, Hospitalization, Other)
  Sender: FDA-Public Use
  Company Number: ZA-009507513-2301ZAF009056

PATIENT
  Age: 54 Year
  Sex: Male

DRUGS (1)
  1. KEYTRUDA [Suspect]
     Active Substance: PEMBROLIZUMAB
     Indication: Transitional cell carcinoma metastatic
     Dosage: 200 MILLIGRAM, Q21D
     Route: 042
     Dates: start: 20221117, end: 20221207

REACTIONS (5)
  - Death [Fatal]
  - Liver disorder [Unknown]
  - Immune-mediated hepatitis [Recovering/Resolving]
  - Alcoholic liver disease [Unknown]
  - Influenza like illness [Unknown]

NARRATIVE: CASE EVENT DATE: 20220101
